FAERS Safety Report 5272296-8 (Version None)
Quarter: 2007Q1

REPORT INFORMATION
  Report Type: 
  Country: None (occurrence: None)
  Receive Date: 20070322
  Receipt Date: 20070308
  Transmission Date: 20070707
  Serious: Yes (Death)
  Sender: FDA-Public Use
  Company Number: US-JNJFOC-20060405873

PATIENT
  Age: 18 Year
  Sex: Female

DRUGS (3)
  1. EXTRA STRENGTH TYLENOL [Suspect]
     Indication: DRUG ABUSER
     Dosage: UNKNOWN
     Route: 055
  2. HEROIN [Suspect]
     Indication: DRUG ABUSER
     Dosage: UNKNOWN
     Route: 055
  3. ALCOHOL [Suspect]
     Indication: DRUG USE FOR UNKNOWN INDICATION
     Dosage: UNKNOWN

REACTIONS (1)
  - DRUG ABUSER [None]
